FAERS Safety Report 16871172 (Version 2)
Quarter: 2019Q4

REPORT INFORMATION
  Report Type: Report from Study
  Country: None (occurrence: US)
  Receive Date: 20190930
  Receipt Date: 20191230
  Transmission Date: 20200122
  Serious: Yes (Other)
  Sender: FDA-Public Use
  Company Number: US-ABBVIE-19K-163-2944683-00

PATIENT
  Age: 45 Year
  Sex: Female
  Weight: 61.29 kg

DRUGS (3)
  1. HUMIRA [Suspect]
     Active Substance: ADALIMUMAB
     Indication: SPONDYLITIS
  2. METHOTREXATE. [Concomitant]
     Active Substance: METHOTREXATE
     Indication: PRODUCT USED FOR UNKNOWN INDICATION
  3. HUMIRA [Suspect]
     Active Substance: ADALIMUMAB
     Indication: RHEUMATOID ARTHRITIS
     Route: 058
     Dates: start: 201205, end: 201610

REACTIONS (7)
  - Urinary casts present [Unknown]
  - Lupus-like syndrome [Unknown]
  - Hysterectomy [Unknown]
  - Renal haemorrhage [Unknown]
  - IgA nephropathy [Unknown]
  - Uterine leiomyoma [Not Recovered/Not Resolved]
  - Spondylitis [Unknown]

NARRATIVE: CASE EVENT DATE: 201611
